FAERS Safety Report 7920712-2 (Version None)
Quarter: 2011Q4

REPORT INFORMATION
  Report Type: 
  Country: None (occurrence: None)
  Receive Date: 20111117
  Receipt Date: 20111114
  Transmission Date: 20120403
  Serious: Yes (Other)
  Sender: FDA-Public Use
  Company Number: US-ROCHE-1012707

PATIENT

DRUGS (4)
  1. AVASTIN [Suspect]
     Indication: FIBROMA
  2. TEMOZOLOMIDE [Suspect]
     Indication: FIBROMA
  3. AVASTIN [Suspect]
     Indication: HAEMANGIOPERICYTOMA
     Route: 042
  4. TEMOZOLOMIDE [Suspect]
     Indication: HAEMANGIOPERICYTOMA
     Route: 048

REACTIONS (9)
  - PERFORMANCE STATUS DECREASED [None]
  - NEUTROPENIA [None]
  - BONE MARROW FAILURE [None]
  - FATIGUE [None]
  - CHILLS [None]
  - HEADACHE [None]
  - PYREXIA [None]
  - THROMBOCYTOPENIA [None]
  - NAUSEA [None]
